FAERS Safety Report 5644106-8 (Version None)
Quarter: 2008Q1

REPORT INFORMATION
  Report Type: 
  Country: None (occurrence: None)
  Receive Date: 20080226
  Receipt Date: 20080214
  Transmission Date: 20080703
  Serious: Yes (Hospitalization)
  Sender: FDA-Public Use
  Company Number: B0508540A

PATIENT
  Age: 51 Year
  Sex: Female
  Weight: 56.8811 kg

DRUGS (2)
  1. LAPATINIB TABLET (LAPATINIB) [Suspect]
     Indication: BREAST CANCER METASTATIC
     Dosage: ORAL
     Route: 048
     Dates: start: 20070919
  2. CAPECITABINE (FORMULATION UNKNOWN) (CAPECITABINE) [Suspect]
     Indication: BREAST CANCER METASTATIC
     Dosage: CYCLIC/ORAL
     Route: 048
     Dates: start: 20070919

REACTIONS (2)
  - DIARRHOEA [None]
  - HYPOKALAEMIA [None]
